FAERS Safety Report 11772714 (Version 1)
Quarter: 2015Q4

REPORT INFORMATION
  Report Type: Spontaneous
  Country: US (occurrence: US)
  Receive Date: 20151124
  Receipt Date: 20151124
  Transmission Date: 20160304
  Serious: Yes (Hospitalization)
  Sender: FDA-Public Use
  Company Number: US-MALLINCKRODT-T201503545

PATIENT
  Age: 53 Year
  Sex: Male

DRUGS (7)
  1. HYPOTEN [Concomitant]
     Dosage: UNK
  2. GABLOFEN [Suspect]
     Active Substance: BACLOFEN
     Indication: MUSCLE SPASTICITY
     Dosage: 2000 MCG/ML AT A DOSE OF 363 MCG/DAY
     Route: 037
  3. DANTRIUM [Concomitant]
     Active Substance: DANTROLENE SODIUM
     Dosage: UNK
  4. GLIPIZIDE. [Concomitant]
     Active Substance: GLIPIZIDE
     Dosage: UNK
  5. GABLOFEN [Suspect]
     Active Substance: BACLOFEN
     Dosage: 500 MCG/ML AT A DOSE OF 100 MCG/DAY
     Route: 037
  6. DILTIAZEM [Concomitant]
     Active Substance: DILTIAZEM
     Dosage: UNK
  7. COZAAR [Concomitant]
     Active Substance: LOSARTAN POTASSIUM
     Dosage: UNK

REACTIONS (3)
  - Muscle spasticity [Unknown]
  - Granuloma [Not Recovered/Not Resolved]
  - Drug ineffective [Unknown]

NARRATIVE: CASE EVENT DATE: 201504
